FAERS Safety Report 7943119-0 (Version None)
Quarter: 2011Q4

REPORT INFORMATION
  Report Type: 
  Country: None (occurrence: None)
  Receive Date: 20111128
  Receipt Date: 20111115
  Transmission Date: 20120403
  Serious: No
  Sender: FDA-Public Use
  Company Number: PHHY2011HU96552

PATIENT
  Age: 63 Year
  Sex: Female

DRUGS (4)
  1. AZILECT [Interacting]
  2. ROPINIROLE [Interacting]
  3. MADOPAR [Interacting]
  4. TASIGNA [Suspect]
     Indication: CHRONIC MYELOID LEUKAEMIA
     Dosage: 400 MG, BID
     Route: 048
     Dates: start: 20110925

REACTIONS (4)
  - NECK PAIN [None]
  - DRUG INTERACTION [None]
  - PAIN [None]
  - HEADACHE [None]
